FAERS Safety Report 13652185 (Version 1)
Quarter: 2017Q2

REPORT INFORMATION
  Report Type: Spontaneous
  Country: JP (occurrence: JP)
  Receive Date: 20170614
  Receipt Date: 20170614
  Transmission Date: 20170830
  Serious: Yes (Hospitalization)
  Sender: FDA-Public Use
  Company Number: JP-PFIZER INC-2016407587

PATIENT
  Age: 63 Year
  Sex: Male

DRUGS (2)
  1. TORISEL [Suspect]
     Active Substance: TEMSIROLIMUS
     Indication: RENAL CELL CARCINOMA
     Dosage: 20 MG, DAILY
     Route: 041
     Dates: end: 201608
  2. TORISEL [Suspect]
     Active Substance: TEMSIROLIMUS
     Dosage: 20 MG, DAILY

REACTIONS (4)
  - Condition aggravated [Unknown]
  - Cardiac failure [Unknown]
  - Stomatitis [Not Recovered/Not Resolved]
  - Rash [Recovering/Resolving]

NARRATIVE: CASE EVENT DATE: 2016
